FAERS Safety Report 18367147 (Version 1)
Quarter: 2020Q4

REPORT INFORMATION
  Report Type: Spontaneous
  Country: HU (occurrence: HU)
  Receive Date: 20201009
  Receipt Date: 20201009
  Transmission Date: 20210114
  Serious: Yes (Other)
  Sender: FDA-Public Use
  Company Number: HU-JNJFOC-A-CH2018-169164

PATIENT
  Age: 12 Year
  Sex: Male
  Weight: 19.5 kg

DRUGS (1)
  1. ZAVESCA [Suspect]
     Active Substance: MIGLUSTAT
     Indication: LYSOSOMAL ACID LIPASE DEFICIENCY
     Dosage: 100 MG, TID
     Route: 048
     Dates: start: 20180313

REACTIONS (3)
  - Galactosialidosis [Unknown]
  - Feeding disorder [Unknown]
  - Product use in unapproved indication [Unknown]

NARRATIVE: CASE EVENT DATE: 20180313
